FAERS Safety Report 5329336-7 (Version None)
Quarter: 2007Q2

REPORT INFORMATION
  Report Type: 
  Country: None (occurrence: None)
  Receive Date: 20070518
  Receipt Date: 20070507
  Transmission Date: 20071010
  Serious: Yes (Hospitalization)
  Sender: FDA-Public Use
  Company Number: FR-PFIZER INC-2007038401

PATIENT
  Age: 3 Year
  Sex: Male
  Weight: 14 kg

DRUGS (2)
  1. CEFPODOXIME PROXETIL SUSPENSION [Suspect]
     Indication: EAR INFECTION
     Dosage: DAILY DOSE:80MG
     Route: 048
     Dates: start: 20061026, end: 20061027
  2. DOLIPRANE [Concomitant]
     Indication: EAR INFECTION

REACTIONS (5)
  - ABDOMINAL PAIN [None]
  - DIARRHOEA [None]
  - PYREXIA [None]
  - TREMOR [None]
  - VOMITING [None]
